FAERS Safety Report 6164457-0 (Version None)
Quarter: 2009Q2

REPORT INFORMATION
  Report Type: 
  Country: None (occurrence: None)
  Receive Date: 20090421
  Receipt Date: 20090414
  Transmission Date: 20091009
  Serious: Yes (Other)
  Sender: FDA-Public Use
  Company Number: CHPA2009US09539

PATIENT
  Age: 83 Year
  Sex: Female
  Weight: 68 kg

DRUGS (8)
  1. BENEFIBER W/ WHEAT DEXTRIN (NCH) (WHEAT DEXTRIN) POWDER [Suspect]
     Indication: CONSTIPATION
     Dosage: ORAL; 1 TSP, BID, ORAL
     Route: 048
     Dates: start: 20080101, end: 20080101
  2. BENEFIBER W/ WHEAT DEXTRIN (NCH) (WHEAT DEXTRIN) POWDER [Suspect]
     Indication: CONSTIPATION
     Dosage: ORAL; 1 TSP, BID, ORAL
     Route: 048
     Dates: start: 20090301, end: 20090401
  3. COUMADIN [Concomitant]
  4. ZETIA [Concomitant]
  5. ACETAMINOPHEN [Concomitant]
  6. ALLOPURINOL [Concomitant]
  7. COZAAR [Concomitant]
  8. COREG [Concomitant]

REACTIONS (2)
  - ATRIAL FIBRILLATION [None]
  - INTERNATIONAL NORMALISED RATIO DECREASED [None]
